FAERS Safety Report 7029747-8 (Version None)
Quarter: 2010Q4

REPORT INFORMATION
  Report Type: 
  Country: None (occurrence: None)
  Receive Date: 20101005
  Receipt Date: 20101005
  Transmission Date: 20110411
  Serious: Yes (Other)
  Sender: FDA-Public Use
  Company Number: None

PATIENT
  Age: 51 Year
  Sex: Female
  Weight: 83.9154 kg

DRUGS (1)
  1. LEVAQUIN [Suspect]
     Indication: RESPIRATORY TRACT INFECTION
     Dosage: 1 TABLET DAILY PO
     Route: 048
     Dates: start: 20100915, end: 20100916

REACTIONS (7)
  - BLOOD DISORDER [None]
  - BONE MARROW FAILURE [None]
  - DRUG HYPERSENSITIVITY [None]
  - FATIGUE [None]
  - PLATELET COUNT DECREASED [None]
  - RASH [None]
  - SWELLING FACE [None]
